FAERS Safety Report 21217672 (Version 3)
Quarter: 2022Q3

REPORT INFORMATION
  Report Type: Report from Study
  Country: DE (occurrence: None)
  Receive Date: 20220816
  Receipt Date: 20220919
  Transmission Date: 20221027
  Serious: Yes (Hospitalization)
  Sender: FDA-Public Use
  Company Number: DE-ROCHE-3156350

PATIENT
  Age: 51 Year
  Sex: Female
  Weight: 92 kg

DRUGS (23)
  1. ATEZOLIZUMAB [Suspect]
     Active Substance: ATEZOLIZUMAB
     Indication: Ovarian cancer recurrent
     Dosage: DATE OF LAST DOSE: 02/AUG/2022, 31/AUG/2022
     Route: 041
     Dates: start: 20220620
  2. BEVACIZUMAB [Suspect]
     Active Substance: BEVACIZUMAB
     Indication: Ovarian cancer recurrent
     Dosage: DATE OF LAST DOSE : 02/AUG/2022
     Route: 042
     Dates: start: 20220620
  3. DOXORUBICIN HYDROCHLORIDE [Suspect]
     Active Substance: DOXORUBICIN HYDROCHLORIDE
     Indication: Ovarian cancer recurrent
     Dosage: DATE OF LAST DOSE: 19/JUL/2022, 31/AUG/2022
     Route: 042
     Dates: start: 20220620
  4. LEVOTHYROXINE [Concomitant]
     Active Substance: LEVOTHYROXINE
     Indication: Autoimmune thyroiditis
     Route: 048
     Dates: start: 20220525
  5. SODIUM PICOSULFATE [Concomitant]
     Active Substance: SODIUM PICOSULFATE
     Dates: start: 20220201
  6. SODIUM PICOSULFATE [Concomitant]
     Active Substance: SODIUM PICOSULFATE
  7. MAGNESIUM [Concomitant]
     Active Substance: MAGNESIUM
     Indication: Constipation
     Route: 048
     Dates: start: 20220215
  8. DEXAMETHASONE [Concomitant]
     Active Substance: DEXAMETHASONE
     Route: 048
     Dates: start: 20220719, end: 20220721
  9. DEXAMETHASONE [Concomitant]
     Active Substance: DEXAMETHASONE
  10. TINZAPARIN [Concomitant]
     Active Substance: TINZAPARIN
     Indication: Prophylaxis
     Dosage: 18000 I.E.
     Route: 058
     Dates: start: 20220622
  11. MCP [Concomitant]
     Active Substance: METOCLOPRAMIDE HYDROCHLORIDE
     Indication: Prophylaxis
     Route: 048
     Dates: start: 20220719, end: 20220722
  12. MCP [Concomitant]
     Active Substance: METOCLOPRAMIDE HYDROCHLORIDE
  13. PANTOPRAZOLE SODIUM [Concomitant]
     Active Substance: PANTOPRAZOLE SODIUM
     Indication: Prophylaxis
     Route: 048
     Dates: start: 20220620
  14. ERGOCALCIFEROL [Concomitant]
     Active Substance: ERGOCALCIFEROL
     Dosage: 20000 IE/ WEEK
     Route: 048
     Dates: start: 20160601
  15. DOLOPHINE [Concomitant]
     Active Substance: METHADONE HYDROCHLORIDE
     Route: 048
     Dates: start: 20190301
  16. ACETAMINOPHEN [Concomitant]
     Active Substance: ACETAMINOPHEN
     Indication: Abdominal pain
     Route: 048
     Dates: start: 20220601
  17. METAMIZOL [Concomitant]
     Active Substance: METAMIZOLE SODIUM
     Indication: Abdominal pain
     Dosage: DRUG FORM : GTT
     Route: 048
     Dates: start: 20220729
  18. MCP [Concomitant]
     Active Substance: METOCLOPRAMIDE HYDROCHLORIDE
     Route: 048
     Dates: start: 20220901
  19. METAMIZOL [Concomitant]
     Active Substance: METAMIZOLE SODIUM
     Route: 042
     Dates: start: 20220807, end: 20220813
  20. ACETAMINOPHEN [Concomitant]
     Active Substance: ACETAMINOPHEN
     Route: 048
     Dates: start: 20220809, end: 20220813
  21. ACETAMINOPHEN [Concomitant]
     Active Substance: ACETAMINOPHEN
     Route: 042
     Dates: start: 20220809, end: 20220813
  22. DEXAMETHASONE [Concomitant]
     Active Substance: DEXAMETHASONE
     Indication: Prophylaxis
     Route: 048
     Dates: start: 20220831
  23. SODIUM PICOSULFATE [Concomitant]
     Active Substance: SODIUM PICOSULFATE
     Indication: Constipation
     Route: 048
     Dates: start: 20220801

REACTIONS (5)
  - Constipation [Not Recovered/Not Resolved]
  - Abdominal pain [Not Recovered/Not Resolved]
  - Subileus [Recovered/Resolved]
  - Ileus [Not Recovered/Not Resolved]
  - Constipation [Not Recovered/Not Resolved]

NARRATIVE: CASE EVENT DATE: 20220804
